FAERS Safety Report 5721495-7 (Version None)
Quarter: 2008Q2

REPORT INFORMATION
  Report Type: 
  Country: None (occurrence: None)
  Receive Date: 20080428
  Receipt Date: 20080428
  Transmission Date: 20081010
  Serious: Yes (Hospitalization)
  Sender: FDA-Public Use
  Company Number: None

PATIENT
  Age: 34 Year
  Sex: Male
  Weight: 97.5234 kg

DRUGS (1)
  1. LIALDA 1.2MG SHIRE [Suspect]
     Dosage: 4.8MG ONCE DAILY PO
     Route: 048
     Dates: start: 20080317, end: 20080330

REACTIONS (7)
  - COLITIS ULCERATIVE [None]
  - DEHYDRATION [None]
  - DISEASE PROGRESSION [None]
  - GASTRITIS [None]
  - PYREXIA [None]
  - VOMITING [None]
  - WEIGHT DECREASED [None]
